FAERS Safety Report 18891355 (Version 3)
Quarter: 2022Q2

REPORT INFORMATION
  Report Type: Report from Study
  Country: US (occurrence: None)
  Receive Date: 20210215
  Receipt Date: 20220414
  Transmission Date: 20220721
  Serious: Yes (Hospitalization, Other)
  Sender: FDA-Public Use
  Company Number: US-MERCK KGAA-E2B_80006796

PATIENT
  Age: 52 Year
  Sex: Female
  Weight: 79 kg

DRUGS (7)
  1. REBIF [Suspect]
     Active Substance: INTERFERON BETA-1A
     Indication: Multiple sclerosis
     Route: 058
     Dates: start: 20140325
  2. REBIF [Suspect]
     Active Substance: INTERFERON BETA-1A
     Route: 058
  3. REBIF [Suspect]
     Active Substance: INTERFERON BETA-1A
     Route: 058
     Dates: start: 20151011
  4. BUTALBITAL [Concomitant]
     Active Substance: BUTALBITAL
     Indication: Migraine
  5. ACETAMINOPHEN [Concomitant]
     Active Substance: ACETAMINOPHEN
     Indication: Migraine
  6. CAFFEINE [Concomitant]
     Active Substance: CAFFEINE
     Indication: Migraine
  7. BUDESONIDE [Concomitant]
     Active Substance: BUDESONIDE
     Indication: Diarrhoea

REACTIONS (24)
  - Osteonecrosis [Unknown]
  - Intestinal ischaemia [Unknown]
  - Skin necrosis [Recovering/Resolving]
  - Post procedural hypotension [Unknown]
  - Sepsis [Recovering/Resolving]
  - Colitis [Recovering/Resolving]
  - Post procedural discharge [Not Recovered/Not Resolved]
  - Skin graft infection [Not Recovered/Not Resolved]
  - Ischaemia [Unknown]
  - Impaired healing [Recovering/Resolving]
  - Arthralgia [Unknown]
  - Skeletal injury [Unknown]
  - Injection site pain [Unknown]
  - Procedural pain [Recovering/Resolving]
  - Fungal infection [Recovered/Resolved]
  - Dry skin [Unknown]
  - Feeling hot [Not Recovered/Not Resolved]
  - Scar [Recovering/Resolving]
  - Dysphagia [Unknown]
  - Post procedural complication [Unknown]
  - Depression [Recovering/Resolving]
  - Body temperature increased [Not Recovered/Not Resolved]
  - Physical assault [Unknown]
  - Product dose omission issue [Unknown]

NARRATIVE: CASE EVENT DATE: 20170201
